FAERS Safety Report 5446646-3 (Version None)
Quarter: 2007Q3

REPORT INFORMATION
  Report Type: 
  Country: None (occurrence: None)
  Receive Date: 20070907
  Receipt Date: 20070830
  Transmission Date: 20080115
  Serious: Yes (Death, Hospitalization, Other)
  Sender: FDA-Public Use
  Company Number: US-PFIZER INC-2007070954

PATIENT
  Sex: Male
  Weight: 90.7 kg

DRUGS (9)
  1. SUTENT [Suspect]
     Indication: NEOPLASM MALIGNANT
     Route: 048
     Dates: start: 20070815, end: 20070826
  2. PEMETREXED [Suspect]
     Indication: NEOPLASM MALIGNANT
     Route: 042
     Dates: start: 20070814, end: 20070814
  3. RANITIDINE [Concomitant]
     Route: 048
  4. METFORMIN [Concomitant]
     Route: 048
     Dates: start: 19990101
  5. LOVASTATIN [Concomitant]
     Route: 048
     Dates: start: 19990101
  6. GLIPIZIDE [Concomitant]
     Route: 048
     Dates: start: 19990101
  7. STOOL SOFTENER [Concomitant]
     Route: 048
     Dates: start: 20050101
  8. TYLENOL (CAPLET) [Concomitant]
     Route: 048
  9. VITAMIN CAP [Concomitant]
     Route: 048
     Dates: start: 20070808

REACTIONS (1)
  - CEREBRAL HAEMORRHAGE [None]
